FAERS Safety Report 10479173 (Version 2)
Quarter: 2014Q4

REPORT INFORMATION
  Report Type: Spontaneous
  Country: IT (occurrence: IT)
  Receive Date: 20140926
  Receipt Date: 20141015
  Transmission Date: 20150528
  Serious: Yes (Death)
  Sender: FDA-Public Use
  Company Number: IT-ABBVIE-14K-083-1287069-00

PATIENT
  Age: 63 Year
  Sex: Male

DRUGS (2)
  1. HUMIRA [Suspect]
     Active Substance: ADALIMUMAB
     Indication: PRODUCT USED FOR UNKNOWN INDICATION
     Route: 058
  2. ARAVA [Suspect]
     Active Substance: LEFLUNOMIDE
     Indication: PSORIATIC ARTHROPATHY
     Route: 048

REACTIONS (11)
  - Vomiting [Fatal]
  - Pyrexia [Fatal]
  - Abdominal pain upper [Fatal]
  - Lung disorder [Fatal]
  - Dyspepsia [Fatal]
  - Chills [Fatal]
  - Respiratory failure [Fatal]
  - Pyrexia [Fatal]
  - Abdominal pain [Fatal]
  - Transaminases increased [Fatal]
  - Lung consolidation [Fatal]

NARRATIVE: CASE EVENT DATE: 20121225
